FAERS Safety Report 9288150 (Version 1)
Quarter: 2013Q2

REPORT INFORMATION
  Report Type: Spontaneous
  Country: FR (occurrence: FR)
  Receive Date: 20130514
  Receipt Date: 20130514
  Transmission Date: 20140414
  Serious: Yes (Other)
  Sender: FDA-Public Use
  Company Number: FR-JNJFOC-20130501732

PATIENT
  Age: 60 Year
  Sex: Male

DRUGS (6)
  1. STELARA [Suspect]
     Indication: PSORIASIS
     Route: 058
     Dates: start: 201204
  2. DEROXAT [Suspect]
     Indication: PRODUCT USED FOR UNKNOWN INDICATION
     Route: 048
  3. COKENZEN [Suspect]
     Indication: HYPERTENSION
     Dosage: CANDESARTAN CILEXETIL/HYDROCHLOROTHIAZIDE 8 MG/12.5 MG
     Route: 048
  4. INEXIUM [Suspect]
     Indication: PRODUCT USED FOR UNKNOWN INDICATION
     Route: 048
  5. CORTANCYL [Suspect]
     Indication: PSORIASIS
     Route: 048
     Dates: start: 201204
  6. HYPERIUM [Suspect]
     Indication: HYPERTENSION
     Route: 048

REACTIONS (4)
  - Hypertension [Recovered/Resolved]
  - Headache [Recovered/Resolved]
  - Vomiting [Recovered/Resolved]
  - Inappropriate schedule of drug administration [Unknown]
